FAERS Safety Report 12820550 (Version 2)
Quarter: 2016Q4

REPORT INFORMATION
  Report Type: Spontaneous
  Country: US (occurrence: US)
  Receive Date: 20161006
  Receipt Date: 20161226
  Transmission Date: 20170207
  Serious: No
  Sender: FDA-Public Use
  Company Number: US-ASTRAZENECA-2016SE93177

PATIENT
  Age: 30320 Day
  Sex: Female
  Weight: 57.6 kg

DRUGS (5)
  1. ALBUTEROL. [Concomitant]
     Active Substance: ALBUTEROL
     Indication: CHRONIC OBSTRUCTIVE PULMONARY DISEASE
     Route: 055
  2. OTHER MEDICATION [Concomitant]
     Active Substance: UNSPECIFIED INGREDIENT
  3. TUDORZA PRESSAIR [Suspect]
     Active Substance: ACLIDINIUM BROMIDE
     Indication: CHRONIC OBSTRUCTIVE PULMONARY DISEASE
     Route: 055
     Dates: start: 2014
  4. TUDORZA PRESSAIR [Suspect]
     Active Substance: ACLIDINIUM BROMIDE
     Indication: EMPHYSEMA
     Route: 055
     Dates: start: 2014
  5. ALBUTEROL. [Concomitant]
     Active Substance: ALBUTEROL
     Indication: EMPHYSEMA
     Route: 055

REACTIONS (5)
  - Nervousness [Unknown]
  - Device malfunction [Unknown]
  - Visual acuity reduced [Unknown]
  - Intentional product misuse [Unknown]
  - Drug dose omission [Unknown]

NARRATIVE: CASE EVENT DATE: 20160828
